FAERS Safety Report 16823456 (Version 1)
Quarter: 2019Q3

REPORT INFORMATION
  Report Type: Spontaneous
  Country: US (occurrence: US)
  Receive Date: 20190918
  Receipt Date: 20190918
  Transmission Date: 20191005
  Serious: Yes (Other)
  Sender: FDA-Public Use
  Company Number: US-AMERICAN REGENT INC-2019002021

PATIENT
  Age: 71 Year
  Sex: Female

DRUGS (3)
  1. NOREPINEPHRINE                     /00127502/ [Suspect]
     Active Substance: NOREPINEPHRINE BITARTRATE
     Indication: STRESS CARDIOMYOPATHY
     Dosage: UNK
  2. MILRINONE [Suspect]
     Active Substance: MILRINONE
     Indication: STRESS CARDIOMYOPATHY
     Dosage: UNK
  3. DOPAMINE HCL INJECTION, USP (1805-25) [Suspect]
     Active Substance: DOPAMINE HYDROCHLORIDE
     Indication: STRESS CARDIOMYOPATHY

REACTIONS (3)
  - Drug ineffective [Recovered/Resolved]
  - Conduction disorder [Recovered/Resolved]
  - Haemodynamic instability [Recovered/Resolved]
